FAERS Safety Report 4388177-8 (Version None)
Quarter: 2004Q2

REPORT INFORMATION
  Report Type: 
  Country: None (occurrence: None)
  Receive Date: 20040625
  Receipt Date: 20040615
  Transmission Date: 20050107
  Serious: Yes (Life-Threatening, Hospitalization)
  Sender: FDA-Public Use
  Company Number: 2004030018

PATIENT
  Age: 17 Year
  Sex: Female
  Weight: 60 kg

DRUGS (4)
  1. FELBATOL [Suspect]
     Indication: CONVULSION
     Dosage: 2400 MG, BID, PO
     Route: 048
     Dates: start: 19920101, end: 20040319
  2. DILANTIN [Suspect]
     Indication: PARTIAL SEIZURES
     Dosage: 200 MG BID, PO
     Route: 048
     Dates: start: 20040219, end: 20040319
  3. PHENOBARBITAL TAB [Concomitant]
  4. SYNTHROID [Concomitant]

REACTIONS (13)
  - ALANINE AMINOTRANSFERASE INCREASED [None]
  - ANTINUCLEAR ANTIBODY POSITIVE [None]
  - APLASTIC ANAEMIA [None]
  - BLOOD CALCIUM DECREASED [None]
  - BLOOD PRESSURE DECREASED [None]
  - BONE MARROW DEPRESSION [None]
  - COOMBS TEST NEGATIVE [None]
  - FEBRILE NEUTROPENIA [None]
  - FUNGAL INFECTION [None]
  - PARTIAL SEIZURES [None]
  - PROTEIN TOTAL DECREASED [None]
  - SYSTEMIC LUPUS ERYTHEMATOSUS [None]
  - WHITE BLOOD CELL COUNT DECREASED [None]
